FAERS Safety Report 6019787-X (Version None)
Quarter: 2008Q4

REPORT INFORMATION
  Report Type: 
  Country: None (occurrence: None)
  Receive Date: 20081224
  Receipt Date: 20081217
  Transmission Date: 20090506
  Serious: Yes (Hospitalization)
  Sender: FDA-Public Use
  Company Number: US-GENENTECH-274191

PATIENT
  Age: 61 Year
  Sex: Female
  Weight: 86.168 kg

DRUGS (1)
  1. RAPTIVA [Suspect]
     Indication: PSORIASIS
     Dosage: UNK
     Route: 058

REACTIONS (2)
  - MIGRAINE [None]
  - NASOPHARYNGITIS [None]
